FAERS Safety Report 7310587-7 (Version None)
Quarter: 2011Q1

REPORT INFORMATION
  Report Type: 
  Country: None (occurrence: None)
  Receive Date: 20110224
  Receipt Date: 20101202
  Transmission Date: 20110831
  Serious: No
  Sender: FDA-Public Use
  Company Number: US-BRISTOL-MYERS SQUIBB COMPANY-15000995

PATIENT
  Age: 63 Year
  Sex: Female
  Weight: 90 kg

DRUGS (4)
  1. SYNTHROID [Concomitant]
  2. GLUCOPHAGE [Suspect]
     Indication: TYPE 2 DIABETES MELLITUS
     Dosage: 1 DOSAGE FORM = 1 TABLET OF 1000MG GLUCOPHAGE.;THERAPY STARTED ON 2000
     Route: 048
     Dates: start: 20000101
  3. ZETIA [Concomitant]
  4. ACCUPRIL [Concomitant]

REACTIONS (8)
  - FATIGUE [None]
  - PRURITUS [None]
  - DYSGEUSIA [None]
  - BLOOD GLUCOSE FLUCTUATION [None]
  - ORAL DISCOMFORT [None]
  - WEIGHT INCREASED [None]
  - ABDOMINAL DISCOMFORT [None]
  - STOMATITIS [None]
